FAERS Safety Report 24697104 (Version 2)
Quarter: 2024Q4

REPORT INFORMATION
  Report Type: Spontaneous
  Country: US (occurrence: US)
  Receive Date: 20241204
  Receipt Date: 20241205
  Transmission Date: 20250115
  Serious: Yes (Hospitalization, Other)
  Sender: PFIZER
  Company Number: US-PFIZER INC-202400304753

PATIENT
  Age: 64 Year
  Sex: Female
  Weight: 109.2 kg

DRUGS (6)
  1. IBRANCE [Suspect]
     Active Substance: PALBOCICLIB
     Indication: Breast cancer female
     Dosage: UNK
     Dates: start: 201704
  2. IBRANCE [Suspect]
     Active Substance: PALBOCICLIB
     Indication: Hormone receptor positive breast cancer
     Dosage: 100 MG, DAILY ORALLY ON DAYS 1 THROUGH 21 OF EACH 28 DAY CYCLE
     Route: 048
     Dates: start: 20210408
  3. IBRANCE [Suspect]
     Active Substance: PALBOCICLIB
     Dosage: TAKE 1 TABLET (100 MG TOTAL) BY MOUTH DAILY ON DAYS 1 THROUGH 21 OF EACH 28 DAY CYCLE.
     Route: 048
     Dates: start: 20240921
  4. FASLODEX [Suspect]
     Active Substance: FULVESTRANT
     Dosage: UNK
     Dates: start: 201704
  5. FASLODEX [Suspect]
     Active Substance: FULVESTRANT
     Dosage: UNK
     Dates: start: 20240921
  6. ZOMETA [Suspect]
     Active Substance: ZOLEDRONIC ACID
     Dosage: Q (EVERY) 3 MONTH
     Dates: start: 201704

REACTIONS (5)
  - COVID-19 [Unknown]
  - Neutropenia [Unknown]
  - Dyspnoea exertional [Unknown]
  - Back pain [Unknown]
  - Neoplasm progression [Unknown]
